FAERS Safety Report 20531829 (Version 1)
Quarter: 2022Q1

REPORT INFORMATION
  Report Type: Spontaneous
  Country: US (occurrence: None)
  Receive Date: 20220228
  Receipt Date: 20220228
  Transmission Date: 20220424
  Serious: No
  Sender: FDA-Public Use
  Company Number: None

PATIENT
  Age: 55 Year
  Sex: Female

DRUGS (1)
  1. AMBRISENTAN [Suspect]
     Active Substance: AMBRISENTAN
     Indication: Pulmonary hypertension
     Dosage: FREQUENCY : DAILY;?
     Route: 048
     Dates: start: 20190814

REACTIONS (5)
  - Gastrointestinal haemorrhage [None]
  - Anaemia [None]
  - Iron deficiency anaemia [None]
  - Large intestine polyp [None]
  - Haemorrhoids [None]

NARRATIVE: CASE EVENT DATE: 20220201
